FAERS Safety Report 22776116 (Version 2)
Quarter: 2023Q4

REPORT INFORMATION
  Report Type: Spontaneous
  Country: US (occurrence: US)
  Receive Date: 20230802
  Receipt Date: 20231031
  Transmission Date: 20240110
  Serious: No
  Sender: FDA-Public Use
  Company Number: US-SA-SAC20230731001140

PATIENT
  Age: 58 Year
  Sex: Female

DRUGS (1)
  1. DUPIXENT [Suspect]
     Active Substance: DUPILUMAB
     Indication: Dermatitis atopic
     Dosage: DOSE : 300 MG FREQUENCY : EVERY 14 DAYS
     Route: 058
     Dates: start: 202306

REACTIONS (4)
  - Foreign body sensation in eyes [Unknown]
  - Injection site rash [Unknown]
  - Injection site pain [Unknown]
  - Dry eye [Unknown]

NARRATIVE: CASE EVENT DATE: 20230101
